FAERS Safety Report 10224084 (Version 1)
Quarter: 2014Q2

REPORT INFORMATION
  Report Type: Spontaneous
  Country: CO (occurrence: None)
  Receive Date: 20140605
  Receipt Date: 20140605
  Transmission Date: 20141212
  Serious: Yes (Death)
  Sender: FDA-Public Use
  Company Number: FK201402094

PATIENT
  Age: 20 Year
  Sex: Female

DRUGS (1)
  1. OXYTOCIN [Suspect]
     Indication: UTERINE ATONY
     Route: 042
     Dates: start: 20140508, end: 20140508

REACTIONS (3)
  - Drug ineffective [None]
  - General physical health deterioration [None]
  - No therapeutic response [None]
